FAERS Safety Report 4638800-5 (Version None)
Quarter: 2005Q2

REPORT INFORMATION
  Report Type: 
  Country: None (occurrence: None)
  Receive Date: 20050419
  Receipt Date: 20050411
  Transmission Date: 20051028
  Serious: Yes (Death, Hospitalization)
  Sender: FDA-Public Use
  Company Number: 200513266GDDC

PATIENT
  Age: 29 Year
  Sex: Male

DRUGS (2)
  1. ENOXAPARIN SODIUM [Suspect]
     Indication: PROPHYLAXIS
     Route: 058
     Dates: start: 20050309
  2. ENOXAPARIN SODIUM [Suspect]
     Indication: VEIN DISORDER
     Route: 058
     Dates: start: 20050309

REACTIONS (1)
  - PULMONARY EMBOLISM [None]
